FAERS Safety Report 5543783-X (Version None)
Quarter: 2007Q4

REPORT INFORMATION
  Report Type: 
  Country: None (occurrence: None)
  Receive Date: 20071210
  Receipt Date: 20071204
  Transmission Date: 20080405
  Serious: Yes (Hospitalization)
  Sender: FDA-Public Use
  Company Number: DE-ROXANE LABORATORIES, INC-2007-DE-07188GD

PATIENT
  Age: 72 Year
  Sex: Male
  Weight: 85 kg

DRUGS (12)
  1. IBUPROFEN [Suspect]
     Indication: PAIN IN EXTREMITY
  2. MORPHINE [Suspect]
     Indication: PAIN IN EXTREMITY
  3. PIRITRAMIDE [Suspect]
     Indication: PAIN IN EXTREMITY
     Route: 042
  4. PRAMIPEXOLE DIHYDROCHLORIDE [Concomitant]
  5. ACETYLSALICYLIC ACID SRT [Concomitant]
  6. LEVODOPA [Concomitant]
  7. BENSERAZIDE [Concomitant]
  8. GLIMEPARID [Concomitant]
  9. RAMIPRIL [Concomitant]
  10. AMLODIPINE [Concomitant]
  11. ATORVASTATIN [Concomitant]
  12. FUROSEMIDE [Concomitant]

REACTIONS (3)
  - DISTURBANCE IN ATTENTION [None]
  - DRUG INEFFECTIVE [None]
  - FATIGUE [None]
